FAERS Safety Report 25868334 (Version 2)
Quarter: 2025Q4

REPORT INFORMATION
  Report Type: Spontaneous
  Country: US (occurrence: None)
  Receive Date: 20251001
  Receipt Date: 20251202
  Transmission Date: 20260117
  Serious: Yes (Hospitalization)
  Sender: ENDO
  Company Number: US-ENDO USA, INC.-2025-001649

PATIENT
  Sex: Male
  Weight: 104.31 kg

DRUGS (5)
  1. VANTAS [Suspect]
     Active Substance: HISTRELIN ACETATE
     Indication: Gender reassignment therapy
     Dosage: UNK UNKNOWN, UNKNOWN (BETWEEN 8:00-9:00 HOURS)
  2. VANTAS [Suspect]
     Active Substance: HISTRELIN ACETATE
  3. TESTOSTERONE CYPIONATE [Suspect]
     Active Substance: TESTOSTERONE CYPIONATE
     Indication: Hypogonadism male
     Dosage: 200 MILLIGRAM, WEEKLY
  4. TESTOSTERONE CYPIONATE [Suspect]
     Active Substance: TESTOSTERONE CYPIONATE
     Dosage: 150 MILLIGRAM, WEEKLY (LOWERED)
  5. TESTOSTERONE CYPIONATE [Suspect]
     Active Substance: TESTOSTERONE CYPIONATE
     Dosage: UNK UNKNOWN, UNKNOWN (TAKEN OFF OF TESTOSTERONE FOR 8 MONTHS AND WAS GIVEN IT AGAIN AT A LOWER DOSE)

REACTIONS (24)
  - Thrombosis [Unknown]
  - Urine abnormality [Unknown]
  - White blood cell count increased [Unknown]
  - Candida infection [Unknown]
  - Oral mucosal blistering [Unknown]
  - Scar [Unknown]
  - Rash [Unknown]
  - Hypoaesthesia [Unknown]
  - Blister [Unknown]
  - Skin lesion [Unknown]
  - Illness [Unknown]
  - Delusion [Unknown]
  - Aggression [Unknown]
  - Psychotic disorder [Unknown]
  - Renal disorder [Unknown]
  - Eye haemorrhage [Unknown]
  - Renal function test abnormal [Not Recovered/Not Resolved]
  - Urinary hesitation [Not Recovered/Not Resolved]
  - Implant site nodule [Unknown]
  - Gynaecomastia [Unknown]
  - Dysuria [Not Recovered/Not Resolved]
  - Pain [Not Recovered/Not Resolved]
  - Incorrect product administration duration [Not Recovered/Not Resolved]
  - Off label use [Not Recovered/Not Resolved]

NARRATIVE: CASE EVENT DATE: 20220101
